FAERS Safety Report 6095168-8 (Version None)
Quarter: 2009Q1

REPORT INFORMATION
  Report Type: 
  Country: None (occurrence: None)
  Receive Date: 20090227
  Receipt Date: 20080204
  Transmission Date: 20090719
  Serious: No
  Sender: FDA-Public Use
  Company Number: A0707161A

PATIENT
  Age: 52 Year
  Sex: Female

DRUGS (4)
  1. LAMICTAL [Suspect]
     Indication: NEUROPATHY PERIPHERAL
     Dosage: 325MG PER DAY
     Route: 048
     Dates: start: 20070101
  2. PREMARIN [Concomitant]
  3. PROAIR HFA [Concomitant]
  4. ZYLOL [Concomitant]

REACTIONS (7)
  - BURNING SENSATION [None]
  - DIZZINESS [None]
  - DYSPNOEA [None]
  - ERYTHEMA [None]
  - LIP SWELLING [None]
  - PRURITUS [None]
  - RASH [None]
